FAERS Safety Report 21949286 (Version 1)
Quarter: 2023Q1

REPORT INFORMATION
  Report Type: Spontaneous
  Country: US (occurrence: US)
  Receive Date: 20230203
  Receipt Date: 20230203
  Transmission Date: 20230417
  Serious: Yes (Other)
  Sender: FDA-Public Use
  Company Number: US-UCBSA-2023005094

PATIENT
  Age: 52 Year
  Sex: Male

DRUGS (2)
  1. LACOSAMIDE [Suspect]
     Active Substance: LACOSAMIDE
     Indication: Epilepsy
     Dosage: 50 MILLIGRAM, 2X/DAY (BID)
  2. VALPROIC ACID [Suspect]
     Active Substance: VALPROIC ACID
     Indication: Epilepsy
     Dosage: 500 MG IN THE MORNING AND 1,000 MG AT BEDTIME

REACTIONS (4)
  - Hallucination, auditory [Recovered/Resolved]
  - Thinking abnormal [Recovered/Resolved]
  - Schizophrenia [Recovered/Resolved]
  - Delusion [Recovered/Resolved]
